FAERS Safety Report 4805871-2 (Version None)
Quarter: 2005Q4

REPORT INFORMATION
  Report Type: 
  Country: None (occurrence: None)
  Receive Date: 20051021
  Receipt Date: 20051011
  Transmission Date: 20060501
  Serious: Yes (Other)
  Sender: FDA-Public Use
  Company Number: FR-JNJFOC-20050501192

PATIENT
  Sex: Female
  Weight: 55 kg

DRUGS (3)
  1. EPITOMAX [Suspect]
     Indication: PARTIAL SEIZURES
     Route: 048
  2. URBANYL [Concomitant]
     Dosage: DRUG TAKEN AT NIGHT
     Route: 065
  3. ATHYMIL [Concomitant]
     Route: 065

REACTIONS (4)
  - EAR INFECTION [None]
  - EAR PAIN [None]
  - JUGULAR VEIN THROMBOSIS [None]
  - RHINITIS [None]
